APPROVED DRUG PRODUCT: DISPERMOX
Active Ingredient: AMOXICILLIN
Strength: 600MG
Dosage Form/Route: TABLET, FOR SUSPENSION;ORAL
Application: A065159 | Product #001
Applicant: RANBAXY LABORATORIES LTD
Approved: Dec 4, 2003 | RLD: No | RS: No | Type: DISCN